FAERS Safety Report 8885743 (Version 1)
Quarter: 2012Q4

REPORT INFORMATION
  Report Type: 
  Country: BR (occurrence: BR)
  Receive Date: 20121101
  Receipt Date: 20121101
  Transmission Date: 20130627
  Serious: Yes (Other)
  Sender: FDA-Public Use
  Company Number: BR-AMGEN-BRASP2012069672

PATIENT
  Age: 58 Year
  Sex: Male
  Weight: 97 kg

DRUGS (6)
  1. ENBREL [Suspect]
     Indication: RHEUMATOID ARTHRITIS
     Dosage: 50 mg, once weekly
     Route: 058
     Dates: start: 201210
  2. ARAVA [Concomitant]
     Dosage: strength 20mg, at once a day
  3. DICLOFENAC SODIUM [Concomitant]
     Dosage: strength 50mg,unspecified dose, eventually
  4. PREDNISONE [Concomitant]
     Dosage: unspecified dose, at once a day
  5. OMEPRAZOL                          /00661201/ [Concomitant]
     Dosage: unspecified dose, once a day
  6. ATENOLOL [Concomitant]
     Indication: BLOOD PRESSURE INCREASED
     Dosage: unspecified dose, once a day

REACTIONS (2)
  - Hypersensitivity [Unknown]
  - Pruritus [Unknown]
